FAERS Safety Report 21958150 (Version 2)
Quarter: 2023Q1

REPORT INFORMATION
  Report Type: Spontaneous
  Country: US (occurrence: US)
  Receive Date: 20230206
  Receipt Date: 20230208
  Transmission Date: 20230418
  Serious: No
  Sender: FDA-Public Use
  Company Number: US-PFIZER INC-PV202300021313

PATIENT
  Age: 37 Year
  Sex: Male

DRUGS (3)
  1. CIBINQO [Suspect]
     Active Substance: ABROCITINIB
     Indication: Dermatitis
     Dosage: 100 MG, DAILY (TAKE 1 TABLET DAILY WITH FOOD AND WATER)
     Route: 048
  2. CIBINQO [Suspect]
     Active Substance: ABROCITINIB
     Indication: Dermatitis atopic
  3. CIBINQO [Suspect]
     Active Substance: ABROCITINIB
     Indication: Pruritus

REACTIONS (1)
  - No adverse event [Unknown]
